FAERS Safety Report 10977509 (Version 1)
Quarter: 2015Q1

REPORT INFORMATION
  Report Type: Spontaneous
  Country: US (occurrence: None)
  Receive Date: 20150330
  Receipt Date: 20150330
  Transmission Date: 20150721
  Serious: Yes (Other)
  Sender: FDA-Public Use
  Company Number: 2015-10920

PATIENT
  Age: 90 Year
  Sex: Female
  Weight: 51.7 kg

DRUGS (5)
  1. AVASTIN [Suspect]
     Active Substance: BEVACIZUMAB
     Indication: AGE-RELATED MACULAR DEGENERATION
     Route: 031
  2. AREDSAN (CALCIUM ASCORBATE, COPPER SULFATE, DL-ALPHA TOCOPHEROL, FISH OIL, XANTOFYL, ZEAXANTHIN, ZINC SULFATE) [Concomitant]
  3. EYLEA [Suspect]
     Active Substance: AFLIBERCEPT
     Indication: MACULAR DEGENERATION
     Route: 031
  4. WARFARIN (WARFARIN) [Concomitant]
     Active Substance: WARFARIN
  5. CHOLESTEROL (CHOLESTEROL) [Concomitant]

REACTIONS (1)
  - Retinal oedema [None]
